FAERS Safety Report 8170441-8 (Version None)
Quarter: 2012Q1

REPORT INFORMATION
  Report Type: 
  Country: None (occurrence: None)
  Receive Date: 20120104
  Receipt Date: 20111118
  Transmission Date: 20120608
  Serious: No
  Sender: FDA-Public Use
  Company Number: 2011HGS-002846

PATIENT
  Age: 40 Year
  Sex: Female
  Weight: 81.6475 kg

DRUGS (4)
  1. PLAQUENIL (HYDROXYCHLOROQUINE SULFATE) (HYDROXYCHLOROQUINE SULFATE) [Concomitant]
  2. COUMADIN [Concomitant]
  3. BENLYSTA [Suspect]
     Indication: SYSTEMIC LUPUS ERYTHEMATOSUS
     Dosage: 10 MG/KG, 1 IN 28 D, INTRAVENOUS DRIP
     Route: 041
  4. PREDNISONE [Concomitant]

REACTIONS (5)
  - ABDOMINAL DISTENSION [None]
  - DRUG INEFFECTIVE [None]
  - INCREASED APPETITE [None]
  - VASCULITIS [None]
  - CONDITION AGGRAVATED [None]
